FAERS Safety Report 9670176 (Version 1)
Quarter: 2013Q4

REPORT INFORMATION
  Report Type: Spontaneous
  Country: US (occurrence: US)
  Receive Date: 20131105
  Receipt Date: 20131105
  Transmission Date: 20140711
  Serious: No
  Sender: FDA-Public Use
  Company Number: US-BAUSCH-BL-2013-004376

PATIENT
  Age: 84 Year
  Sex: Female

DRUGS (4)
  1. LOTEPREDNOL ETABONATE OPHTHALMIC OINTMENT 0.5% [Suspect]
     Indication: EYE IRRITATION
     Dosage: ONE RIBBON INTO RIGHT EYE AT BEDTIME
     Route: 047
     Dates: start: 20130721
  2. LOTEPREDNOL ETABONATE OPHTHALMIC OINTMENT 0.5% [Suspect]
     Indication: EYE PAIN
     Dosage: ONE RIBBON INTO LEFT EYE AT BEDTIME
     Route: 047
     Dates: start: 20130721
  3. SYSTANE [Concomitant]
     Indication: DRY EYE
  4. ADVANCED EYE RELIEF/EYE WASH [Concomitant]
     Indication: EYE IRRIGATION

REACTIONS (3)
  - Off label use [Not Recovered/Not Resolved]
  - Eye pruritus [Not Recovered/Not Resolved]
  - Pruritus [Not Recovered/Not Resolved]
